FAERS Safety Report 5921824-5 (Version None)
Quarter: 2008Q4

REPORT INFORMATION
  Report Type: 
  Country: None (occurrence: None)
  Receive Date: 20081007
  Receipt Date: 20080925
  Transmission Date: 20090506
  Serious: Yes (Hospitalization)
  Sender: FDA-Public Use
  Company Number: WSDF_00755

PATIENT
  Sex: Male

DRUGS (1)
  1. WINRHO SDF [Suspect]
     Indication: AUTOIMMUNE THROMBOCYTOPENIA

REACTIONS (4)
  - ANTINUCLEAR ANTIBODY POSITIVE [None]
  - ARTHRALGIA [None]
  - NEUTROPHIL COUNT DECREASED [None]
  - NO THERAPEUTIC RESPONSE [None]
